FAERS Safety Report 4404797-6 (Version None)
Quarter: 2004Q3

REPORT INFORMATION
  Report Type: 
  Country: None (occurrence: None)
  Receive Date: 20040720
  Receipt Date: 20040706
  Transmission Date: 20050211
  Serious: Yes (Life-Threatening, Hospitalization)
  Sender: FDA-Public Use
  Company Number: EMADSS2002005738

PATIENT
  Age: 52 Year
  Sex: Female
  Weight: 52 kg

DRUGS (2)
  1. REMICADE [Suspect]
     Dosage: 260 MG, 1 IN 1 AS NECESSARY, INTRAVENOUS DRIP
     Route: 041
     Dates: start: 20020405, end: 20020405
  2. REMICADE [Suspect]
     Dosage: 260 MG, 1 IN 1 AS NECESSARY, INTRAVENOUS DRIP
     Route: 041
     Dates: start: 20020419, end: 20020419

REACTIONS (5)
  - INFLAMMATION [None]
  - LUNG DISORDER [None]
  - PNEUMOCOCCAL SEPSIS [None]
  - SINUSITIS [None]
  - STREPTOCOCCAL INFECTION [None]
